FAERS Safety Report 5712909-7 (Version None)
Quarter: 2008Q2

REPORT INFORMATION
  Report Type: 
  Country: None (occurrence: None)
  Receive Date: 20080421
  Receipt Date: 20080421
  Transmission Date: 20081010
  Serious: Yes (Hospitalization)
  Sender: FDA-Public Use
  Company Number: None

PATIENT
  Sex: Female
  Weight: 80.7 kg

DRUGS (2)
  1. FLUOROURACIL [Suspect]
     Dosage: 7000 MG
  2. MITOMYCIN [Suspect]
     Dosage: 18 MG

REACTIONS (4)
  - FEBRILE NEUTROPENIA [None]
  - PAIN [None]
  - PERITONEAL DISORDER [None]
  - RADIATION INJURY [None]
